FAERS Safety Report 16643034 (Version 2)
Quarter: 2019Q3

REPORT INFORMATION
  Report Type: Report from Study
  Country: None (occurrence: CA)
  Receive Date: 20190729
  Receipt Date: 20190802
  Transmission Date: 20191004
  Serious: No
  Sender: FDA-Public Use
  Company Number: CA-ABBVIE-19K-028-2870528-00

PATIENT
  Age: 79 Year
  Sex: Female

DRUGS (1)
  1. HUMIRA [Suspect]
     Active Substance: ADALIMUMAB
     Indication: RHEUMATOID ARTHRITIS
     Route: 058
     Dates: start: 20120528

REACTIONS (3)
  - Crying [Unknown]
  - Aphonia [Not Recovered/Not Resolved]
  - Screaming [Unknown]

NARRATIVE: CASE EVENT DATE: 201907
